FAERS Safety Report 8397768-9 (Version None)
Quarter: 2012Q2

REPORT INFORMATION
  Report Type: 
  Country: None (occurrence: None)
  Receive Date: 20120524
  Receipt Date: 20120509
  Transmission Date: 20120825
  Serious: Yes (Disabling)
  Sender: FDA-Public Use
  Company Number: 217475

PATIENT
  Age: 42 Year
  Sex: Female

DRUGS (1)
  1. PICATO [Suspect]
     Indication: ACTINIC KERATOSIS
     Dosage: (1 IN 1 D), TOPICAL
     Route: 061
     Dates: start: 20120501, end: 20120502

REACTIONS (4)
  - CHEST PAIN [None]
  - BLISTER [None]
  - SKIN DISORDER [None]
  - ERYTHEMA [None]
